FAERS Safety Report 7068287-7 (Version None)
Quarter: 2010Q4

REPORT INFORMATION
  Report Type: 
  Country: None (occurrence: None)
  Receive Date: 20101027
  Receipt Date: 20101027
  Transmission Date: 20110411
  Serious: Yes (Other)
  Sender: FDA-Public Use
  Company Number: None

PATIENT
  Age: 4 Month
  Sex: Female
  Weight: 6.804 kg

DRUGS (1)
  1. TEETHING TABLETS [Suspect]
     Indication: TEETHING
     Dosage: 2-3 EVERY OTHER DAY PO
     Route: 048
     Dates: start: 20101010, end: 20101023

REACTIONS (2)
  - CONSTIPATION [None]
  - PRODUCT QUALITY ISSUE [None]
